FAERS Safety Report 6537420-5 (Version None)
Quarter: 2010Q1

REPORT INFORMATION
  Report Type: 
  Country: None (occurrence: None)
  Receive Date: 20100107
  Receipt Date: 20091222
  Transmission Date: 20100710
  Serious: Yes (Other)
  Sender: FDA-Public Use
  Company Number: 2009AP005139

PATIENT
  Age: 87 Year
  Sex: Female

DRUGS (6)
  1. CLARITHROMYCIN [Suspect]
  2. ALENDRONIC ACID (ALENDRONIC ACID) [Concomitant]
  3. GLICLAZIDE (GLICLAZIDE) [Concomitant]
  4. OMEPRAZOLE [Concomitant]
  5. ACETAMINOPHEN [Concomitant]
  6. SIMVASTATIN [Concomitant]

REACTIONS (3)
  - AMNESIA [None]
  - CONFUSIONAL STATE [None]
  - MYALGIA [None]
